FAERS Safety Report 23556759 (Version 1)
Quarter: 2024Q1

REPORT INFORMATION
  Report Type: Spontaneous
  Country: US (occurrence: US)
  Receive Date: 20240223
  Receipt Date: 20240223
  Transmission Date: 20240410
  Serious: Yes (Other)
  Sender: FDA-Public Use
  Company Number: US-SUN PHARMACEUTICAL INDUSTRIES LTD-2024R1-432228

PATIENT
  Weight: 49.6 kg

DRUGS (1)
  1. IMATINIB [Suspect]
     Active Substance: IMATINIB
     Indication: Product used for unknown indication
     Dosage: 100 MILLIGRAM
     Route: 048
     Dates: start: 20230316

REACTIONS (6)
  - Chronic kidney disease [Unknown]
  - Chronic myeloid leukaemia [Unknown]
  - Hypertension [Unknown]
  - Treatment noncompliance [Unknown]
  - Anaemia [Unknown]
  - Thrombocytopenia [Unknown]
